FAERS Safety Report 10162854 (Version 1)
Quarter: 2014Q2

REPORT INFORMATION
  Report Type: Report from Study
  Country: BR (occurrence: BR)
  Receive Date: 20140509
  Receipt Date: 20140509
  Transmission Date: 20141212
  Serious: Yes (Death)
  Sender: FDA-Public Use
  Company Number: PHHY2014BR056176

PATIENT
  Sex: Female
  Weight: 89 kg

DRUGS (2)
  1. LOTENSIN [Suspect]
     Indication: HYPERTENSION
     Dosage: UNK UKN, UNK
     Route: 048
  2. LOTENSIN [Suspect]
     Dosage: UNK (DECREASED DOSE)

REACTIONS (1)
  - Renal disorder [Fatal]
